FAERS Safety Report 14742357 (Version 1)
Quarter: 2018Q2

REPORT INFORMATION
  Report Type: Spontaneous
  Country: US (occurrence: US)
  Receive Date: 20180405
  Receipt Date: 20180405
  Transmission Date: 20180711
  Serious: Yes (Hospitalization, Disabling)
  Sender: FDA-Public Use
  Company Number: None

PATIENT
  Age: 27 Year
  Sex: Female
  Weight: 81 kg

DRUGS (8)
  1. VRAYLAR [Suspect]
     Active Substance: CARIPRAZINE
     Indication: DELUSION
     Route: 048
     Dates: start: 20180110, end: 20180117
  2. MULTIPLE VITAMIN [Concomitant]
     Active Substance: VITAMINS
  3. LIVER AID SUPPLEMENT [Concomitant]
  4. ZYPREXA [Concomitant]
     Active Substance: OLANZAPINE
  5. CLONZEPAM [Concomitant]
     Active Substance: CLONAZEPAM
  6. LEVOTHYROXIN [Concomitant]
     Active Substance: LEVOTHYROXINE
  7. CLARITIN [Concomitant]
     Active Substance: LORATADINE
  8. ACIDOPHILUS [Concomitant]
     Active Substance: LACTOBACILLUS ACIDOPHILUS

REACTIONS (6)
  - Agitation [None]
  - Dyskinesia [None]
  - Suicidal ideation [None]
  - Insomnia [None]
  - Gait disturbance [None]
  - Homicidal ideation [None]

NARRATIVE: CASE EVENT DATE: 20180120
